FAERS Safety Report 9392968 (Version 1)
Quarter: 2013Q3

REPORT INFORMATION
  Report Type: Report from Study
  Country: TW (occurrence: TW)
  Receive Date: 20130710
  Receipt Date: 20130710
  Transmission Date: 20140515
  Serious: Yes (Other)
  Sender: FDA-Public Use
  Company Number: TW-ROCHE-1240985

PATIENT
  Age: 27 Year
  Sex: Male

DRUGS (1)
  1. PEG-INTERFERON ALFA 2A [Suspect]
     Indication: CHRONIC HEPATITIS B
     Route: 042
     Dates: start: 20110427, end: 20120328

REACTIONS (3)
  - Abortion [Unknown]
  - Pregnancy [Unknown]
  - Pregnancy of partner [Unknown]
